FAERS Safety Report 10456813 (Version 1)
Quarter: 2014Q3

REPORT INFORMATION
  Report Type: Spontaneous
  Country: US (occurrence: None)
  Receive Date: 20140828
  Receipt Date: 20140828
  Transmission Date: 20150326
  Serious: Yes (Other)
  Sender: FDA-Public Use
  Company Number: PHEH2013US026333

PATIENT
  Age: 56 Year
  Sex: Female
  Weight: 61.2 kg

DRUGS (1)
  1. SANDOSTATIN LAR DEPOT [Suspect]
     Active Substance: OCTREOTIDE ACETATE
     Indication: NEUROENDOCRINE CARCINOMA METASTATIC
     Route: 030
     Dates: start: 20131121

REACTIONS (6)
  - Flushing [None]
  - Diarrhoea [None]
  - Fatigue [None]
  - Anxiety [None]
  - Neoplasm [None]
  - Blood pressure increased [None]

NARRATIVE: CASE EVENT DATE: 20131121
